FAERS Safety Report 21830184 (Version 1)
Quarter: 2023Q1

REPORT INFORMATION
  Report Type: Spontaneous
  Country: US (occurrence: US)
  Receive Date: 20230106
  Receipt Date: 20230106
  Transmission Date: 20230418
  Serious: No
  Sender: FDA-Public Use
  Company Number: US-drreddys-SPO/USA/22/0158723

PATIENT
  Age: 65 Year
  Sex: Female

DRUGS (10)
  1. LENALIDOMIDE [Suspect]
     Active Substance: LENALIDOMIDE
     Indication: Plasma cell myeloma
     Dosage: TAKE 1 CAPSULE BY MOUTH WHOLE WITH WATER AT THE SAME TIME DAILY ON DAYS 1-14 OF EACH 21 DAY CYCLE
     Route: 048
     Dates: start: 20221103
  2. SIMVASTATIN [Concomitant]
     Active Substance: SIMVASTATIN
     Indication: Product used for unknown indication
  3. OMEPRAZOLE [Concomitant]
     Active Substance: OMEPRAZOLE
     Indication: Product used for unknown indication
  4. HYDROCODONE- TAB 10-325MG [Concomitant]
     Indication: Product used for unknown indication
     Dosage: 10-325MG
  5. LEXAPRO TAB 10MG [Concomitant]
     Indication: Product used for unknown indication
  6. LISINOPRIL TAB 2.5MG [Concomitant]
     Indication: Product used for unknown indication
  7. NEURONTIN TAB 600MG [Concomitant]
     Indication: Product used for unknown indication
  8. ROBAXIN SOL 1000MG/10ML [Concomitant]
     Indication: Product used for unknown indication
     Dosage: 1000MG/10ML
  9. VITAMIN D LIQ 10MCG/ML [Concomitant]
     Indication: Product used for unknown indication
     Dosage: 10MCG/ML
  10. DEXAMETHASONE [Concomitant]
     Active Substance: DEXAMETHASONE
     Indication: Product used for unknown indication

REACTIONS (2)
  - Ageusia [Unknown]
  - Product use issue [Unknown]
